FAERS Safety Report 7250079-7 (Version None)
Quarter: 2011Q1

REPORT INFORMATION
  Report Type: 
  Country: None (occurrence: None)
  Receive Date: 20110118
  Receipt Date: 20110107
  Transmission Date: 20110831
  Serious: Yes (Disabling)
  Sender: FDA-Public Use
  Company Number: 2011SP001094

PATIENT
  Age: 25 Year
  Sex: Female

DRUGS (2)
  1. IMPLANON [Suspect]
     Indication: CONTRACEPTION
     Dosage: SC
     Route: 058
     Dates: start: 20100706, end: 20100709
  2. IMPLANON [Suspect]

REACTIONS (8)
  - NAUSEA [None]
  - ANXIETY [None]
  - ACCOMMODATION DISORDER [None]
  - HEADACHE [None]
  - DISTURBANCE IN ATTENTION [None]
  - DIZZINESS [None]
  - THINKING ABNORMAL [None]
  - PALPITATIONS [None]
